FAERS Safety Report 16163674 (Version 2)
Quarter: 2019Q2

REPORT INFORMATION
  Report Type: Spontaneous
  Country: JP (occurrence: JP)
  Receive Date: 20190405
  Receipt Date: 20190420
  Transmission Date: 20190711
  Serious: Yes (Other)
  Sender: FDA-Public Use
  Company Number: JP-ABBVIE-19P-087-2684974-00

PATIENT
  Age: 80 Year
  Sex: Male
  Weight: 55 kg

DRUGS (1)
  1. LEUPLIN SR [Suspect]
     Active Substance: LEUPROLIDE ACETATE
     Indication: PROSTATE CANCER
     Dosage: 11.25 MILLIGRAM, Q3MONTHS
     Route: 058
     Dates: start: 20170313, end: 20181112

REACTIONS (5)
  - Injection site pain [Unknown]
  - Stoma site induration [Recovering/Resolving]
  - Administration site necrosis [Recovering/Resolving]
  - Injection site erythema [Unknown]
  - Skin ulcer [Recovering/Resolving]

NARRATIVE: CASE EVENT DATE: 201812
